FAERS Safety Report 16380489 (Version 2)
Quarter: 2019Q3

REPORT INFORMATION
  Report Type: Spontaneous
  Country: DE (occurrence: DE)
  Receive Date: 20190601
  Receipt Date: 20190706
  Transmission Date: 20191004
  Serious: Yes (Other)
  Sender: FDA-Public Use
  Company Number: DE-AUROBINDO-AUR-APL-2019-029518

PATIENT

DRUGS (1)
  1. LICAIN PUREN SOLUTION FOR INJECTION 10 MG/ML [Suspect]
     Active Substance: LIDOCAINE HYDROCHLORIDE
     Indication: MUSCULOSKELETAL PAIN
     Dosage: 9 MILLILITER, 9ML + 1ML LIPOTALON
     Route: 058

REACTIONS (2)
  - Depressed level of consciousness [Recovered/Resolved]
  - Rash [Recovered/Resolved]

NARRATIVE: CASE EVENT DATE: 20190326
